FAERS Safety Report 9433934 (Version 1)
Quarter: 2013Q3

REPORT INFORMATION
  Report Type: Spontaneous
  Country: US (occurrence: US)
  Receive Date: 20130801
  Receipt Date: 20130801
  Transmission Date: 20140515
  Serious: Yes (Other)
  Sender: FDA-Public Use
  Company Number: US-AMGEN-USASP2013052712

PATIENT
  Age: 56 Year
  Sex: Female
  Weight: 53.06 kg

DRUGS (12)
  1. ENBREL [Suspect]
     Indication: PRODUCT USED FOR UNKNOWN INDICATION
     Dosage: 50 MG, QWK
     Route: 058
  2. CYMBALTA [Concomitant]
     Dosage: 30 MG, UNK
  3. PEG-INTRON [Concomitant]
     Dosage: 80 MUG, UNK
  4. LANSOPRAZOLE [Concomitant]
     Dosage: 15 MG, UNK
  5. VICTRELIS [Concomitant]
     Dosage: 200 MG, UNK
  6. RIBAPAK [Concomitant]
     Dosage: 800 UNK, QD
  7. IMITREX                            /01044801/ [Concomitant]
     Dosage: 50 MG, UNK
  8. D3 [Concomitant]
     Dosage: 2000 UNIT, UNK
  9. MULTIVITAMINS, PLAIN [Concomitant]
     Dosage: UNK
  10. PROBIOTIC                          /06395501/ [Concomitant]
     Dosage: UNK
  11. CALCIUM [Concomitant]
     Dosage: 500 UNK, UNK
  12. IBUPROFEN [Concomitant]
     Dosage: 200 MG, UNK

REACTIONS (1)
  - Injection site cellulitis [Unknown]
